FAERS Safety Report 16736236 (Version 2)
Quarter: 2019Q3

REPORT INFORMATION
  Report Type: Spontaneous
  Country: US (occurrence: US)
  Receive Date: 20190823
  Receipt Date: 20190913
  Transmission Date: 20191005
  Serious: No
  Sender: FDA-Public Use
  Company Number: US-SA-2019SA228368

PATIENT
  Sex: Female

DRUGS (1)
  1. LANTUS SOLOSTAR [Suspect]
     Active Substance: INSULIN GLARGINE
     Indication: TYPE 2 DIABETES MELLITUS
     Dosage: 28 U, QD,1 TIME DAILY,PM
     Route: 065

REACTIONS (4)
  - Hyperglycaemia [Unknown]
  - Product dose omission [Unknown]
  - Product storage error [Unknown]
  - Device operational issue [Unknown]
